FAERS Safety Report 9240244 (Version 1)
Quarter: 2013Q2

REPORT INFORMATION
  Report Type: Spontaneous
  Country: US (occurrence: US)
  Receive Date: 20130418
  Receipt Date: 20130418
  Transmission Date: 20140414
  Serious: Yes (Other)
  Sender: FDA-Public Use
  Company Number: CHPA2013US006409

PATIENT
  Age: 71 Year
  Sex: Female

DRUGS (3)
  1. MAALOX ANTACID/ANTIGAS MAX LIQ [Suspect]
     Dosage: UNK, PRN
     Dates: end: 201211
  2. MAALOX ANTACID/ANTIGAS MAX LIQ [Suspect]
     Dosage: UNK, PRN
     Route: 048
     Dates: end: 201211
  3. TYLENOL COLD [Concomitant]

REACTIONS (2)
  - Ulcer [Recovering/Resolving]
  - Therapeutic response unexpected [Unknown]
